FAERS Safety Report 9962723 (Version 2)
Quarter: 2014Q1

REPORT INFORMATION
  Report Type: Report from Study
  Country: US (occurrence: US)
  Receive Date: 20140305
  Receipt Date: 20140305
  Transmission Date: 20141002
  Serious: No
  Sender: FDA-Public Use
  Company Number: US-ABBVIE-13P-163-1095008-00

PATIENT
  Sex: Female

DRUGS (18)
  1. HUMIRA [Suspect]
     Indication: COLITIS ULCERATIVE
     Dates: start: 20130517, end: 20130517
  2. HUMIRA [Suspect]
     Dates: start: 20130607
  3. HUMIRA [Suspect]
  4. PREDNISONE [Suspect]
     Indication: COLITIS ULCERATIVE
     Dosage: 40MG DAILY
  5. PREDNISONE [Suspect]
     Dosage: DOSE DECREASING
  6. PREDNISONE [Suspect]
     Dosage: CURRENT DOSE: 10MG
  7. LORAZEPAM [Concomitant]
     Indication: ANXIETY
  8. CYMBALTA [Concomitant]
     Indication: PAIN
  9. CYMBALTA [Concomitant]
     Indication: DEPRESSION
  10. OMEPRAZOLE [Concomitant]
     Indication: PROPHYLAXIS AGAINST GASTROINTESTINAL ULCER
     Dosage: 40MG DAILY
  11. CRESTOR [Concomitant]
     Indication: BLOOD CHOLESTEROL INCREASED
     Dosage: 10MG DAILY
  12. LEVOCETIRIZINE [Concomitant]
     Indication: SINUS DISORDER
     Dosage: 5MG DAILY
  13. LEVOCETIRIZINE [Concomitant]
     Indication: PARANASAL SINUS HYPERSECRETION
  14. LOSARTAN [Concomitant]
     Indication: HYPERTENSION
     Dosage: 100MG DAILY
  15. AMBIEN [Concomitant]
     Indication: INSOMNIA
     Dosage: AS NEEDED AT BEDTIME
  16. MULTIVITAMIN [Concomitant]
     Indication: PRODUCT USED FOR UNKNOWN INDICATION
     Dosage: DAILY
  17. CODEINE SULFATE [Concomitant]
     Indication: HEADACHE
     Dosage: TWO TABLETS EVERY 4-6 HOURS AS NEEDED
  18. CHONDROITIN SULFATE [Concomitant]
     Indication: OSTEOARTHRITIS
     Dosage: 600MG DAILY

REACTIONS (8)
  - Respiratory tract infection [Unknown]
  - Abnormal sensation in eye [Unknown]
  - Wheezing [Unknown]
  - Cough [Unknown]
  - Confusional state [Unknown]
  - Anxiety [Not Recovered/Not Resolved]
  - Tremor [Not Recovered/Not Resolved]
  - Paranasal sinus hypersecretion [Unknown]
